FAERS Safety Report 5365302-3 (Version None)
Quarter: 2007Q2

REPORT INFORMATION
  Report Type: 
  Country: None (occurrence: None)
  Receive Date: 20070530
  Receipt Date: 20070410
  Transmission Date: 20071010
  Serious: No
  Sender: FDA-Public Use
  Company Number: 2007PV028327

PATIENT
  Age: 53 Year
  Sex: Female

DRUGS (5)
  1. BYETTA [Suspect]
     Indication: DIABETES MELLITUS NON-INSULIN-DEPENDENT
     Dosage: SEE IMAGE
     Route: 058
     Dates: start: 20061227
  2. BYETTA [Suspect]
  3. GLUCOPHAGE [Concomitant]
  4. GLYBURIDE [Concomitant]
  5. AMARYL [Concomitant]

REACTIONS (7)
  - CHILLS [None]
  - DIZZINESS [None]
  - INJECTION SITE HAEMORRHAGE [None]
  - INJECTION SITE PAIN [None]
  - MALAISE [None]
  - NAUSEA [None]
  - TREMOR [None]
